FAERS Safety Report 19032377 (Version 4)
Quarter: 2021Q2

REPORT INFORMATION
  Report Type: Report from Study
  Country: DE (occurrence: DE)
  Receive Date: 20210319
  Receipt Date: 20210507
  Transmission Date: 20210717
  Serious: Yes (Hospitalization)
  Sender: FDA-Public Use
  Company Number: DE-ROCHE-2307505

PATIENT
  Age: 72 Year
  Sex: Female
  Weight: 77.5 kg

DRUGS (16)
  1. COBIMETINIB. [Suspect]
     Active Substance: COBIMETINIB
     Indication: METASTATIC MALIGNANT MELANOMA
     Route: 048
     Dates: start: 201812, end: 20190102
  2. ARCOXIA [Concomitant]
     Active Substance: ETORICOXIB
     Dates: start: 20080101
  3. ISOPTO?MAX [Concomitant]
     Active Substance: DEXAMETHASONE\NEOMYCIN SULFATE\POLYMYXIN B SULFATE
     Dates: start: 20181115
  4. HYLO COMOD [Concomitant]
     Active Substance: HYALURONATE SODIUM
     Dates: start: 20200713
  5. METOCLOPRAMIDE. [Concomitant]
     Active Substance: METOCLOPRAMIDE
     Dates: start: 20210308
  6. VEMURAFENIB. [Suspect]
     Active Substance: VEMURAFENIB
     Indication: METASTATIC MALIGNANT MELANOMA
     Dosage: DATE OF LAST DOSE PRIOR TO SAE: 02/JAN/2019
     Route: 048
     Dates: start: 20181220, end: 20190102
  7. COBIMETINIB. [Suspect]
     Active Substance: COBIMETINIB
     Route: 048
     Dates: start: 20190107
  8. COBIMETINIB. [Suspect]
     Active Substance: COBIMETINIB
     Dosage: DATE OF LAST DOSE PRIOR TO SAE 01/MAR/2021
     Route: 048
     Dates: start: 20210209
  9. PREDNICARBATE. [Concomitant]
     Active Substance: PREDNICARBATE
     Dates: start: 20200526
  10. VEMURAFENIB. [Suspect]
     Active Substance: VEMURAFENIB
     Dosage: DATE OF LAST DOSE PRIOR TO SAE: 02/JAN/2019
     Route: 048
     Dates: start: 20190107
  11. DEXAPOS [Concomitant]
     Dates: start: 20190107
  12. NITRENDIPINE [Concomitant]
     Active Substance: NITRENDIPINE
     Dates: start: 20190214
  13. KELTICAN FORTE [Concomitant]
     Dates: start: 20120801
  14. ATEZOLIZUMAB. [Suspect]
     Active Substance: ATEZOLIZUMAB
     Indication: METASTATIC MALIGNANT MELANOMA
     Dosage: DATE OF LAST DOSE PRIOR TO SAE 12/JAN/2021
     Route: 042
     Dates: start: 20190314, end: 20210112
  15. PRETERAX [Concomitant]
     Active Substance: INDAPAMIDE\PERINDOPRIL
     Dates: start: 20150101
  16. VEMURAFENIB. [Suspect]
     Active Substance: VEMURAFENIB
     Dosage: DATE OF LAST DOSE PRIOR TO SAE: 02/JAN/2019?DATE OF LAST DOSE PRIOR TO SAE:07/MAR/2021
     Route: 048
     Dates: start: 20210209, end: 20210307

REACTIONS (5)
  - Rhabdomyolysis [Recovered/Resolved]
  - Rhabdomyolysis [Recovered/Resolved]
  - Hepatitis [Not Recovered/Not Resolved]
  - Drug-induced liver injury [Recovered/Resolved]
  - Immune-mediated hepatitis [Recovered/Resolved with Sequelae]

NARRATIVE: CASE EVENT DATE: 20190102
